FAERS Safety Report 15497425 (Version 7)
Quarter: 2019Q2

REPORT INFORMATION
  Report Type: Spontaneous
  Country: US (occurrence: US)
  Receive Date: 20181015
  Receipt Date: 20190620
  Transmission Date: 20190711
  Serious: Yes (Hospitalization, Disabling, Other)
  Sender: FDA-Public Use
  Company Number: US-PFIZER INC-2018418661

PATIENT
  Age: 56 Year
  Sex: Male

DRUGS (8)
  1. PROTONIX [Concomitant]
     Active Substance: PANTOPRAZOLE SODIUM
     Dosage: 40 MG, DAILY
     Route: 048
     Dates: start: 20160713
  2. LOVENOX [Concomitant]
     Active Substance: ENOXAPARIN SODIUM
     Dosage: UNK, 40MG/0.4 ML FOR 24 HOURS
     Route: 058
     Dates: start: 20160713
  3. TYLENOL [Concomitant]
     Active Substance: ACETAMINOPHEN
     Indication: PAIN
     Dosage: 1000 MG, 2X/DAY
     Route: 048
     Dates: start: 20160713
  4. ATIVAN [Concomitant]
     Active Substance: LORAZEPAM
     Indication: SEIZURE
     Dosage: UNK, 2MG/0.5 ML, EVERY 4 HOURS AS NEEDED
     Route: 042
     Dates: start: 20160713
  5. OXCARBAZEPINE. [Concomitant]
     Active Substance: OXCARBAZEPINE
     Dosage: 150 MG, UNK
  6. DILANTIN [Suspect]
     Active Substance: PHENYTOIN
     Indication: SEIZURE
     Dosage: 200 MG, 2X/DAY (ON ALTERNATE DAYS)
     Route: 048
  7. DILANTIN [Suspect]
     Active Substance: PHENYTOIN
     Dosage: 300 MG, 2X/DAY (ON ALTERNATE DAYS)
     Route: 048
  8. DILANTIN [Suspect]
     Active Substance: PHENYTOIN
     Dosage: 300 MG, 3X/DAY
     Route: 048
     Dates: start: 20160713

REACTIONS (14)
  - Abnormal behaviour [Unknown]
  - Mental impairment [Unknown]
  - Mania [Unknown]
  - Ataxia [Unknown]
  - Toxicity to various agents [Unknown]
  - Pain [Unknown]
  - Facial bones fracture [Unknown]
  - Mental status changes [Unknown]
  - Thinking abnormal [Unknown]
  - Spinal osteoarthritis [Unknown]
  - Cerebellar atrophy [Unknown]
  - Confusional state [Unknown]
  - Epistaxis [Unknown]
  - Fall [Unknown]

NARRATIVE: CASE EVENT DATE: 20160715
